FAERS Safety Report 12356191 (Version 2)
Quarter: 2016Q3

REPORT INFORMATION
  Report Type: Spontaneous
  Country: FR (occurrence: FR)
  Receive Date: 20160511
  Receipt Date: 20160907
  Transmission Date: 20161109
  Serious: Yes (Hospitalization, Other)
  Sender: FDA-Public Use
  Company Number: FR-ELI_LILLY_AND_COMPANY-FR201604010403

PATIENT
  Age: 56 Year
  Sex: Female

DRUGS (3)
  1. NIMOTOP [Concomitant]
     Active Substance: NIMODIPINE
  2. SALBUTAMOL [Concomitant]
     Active Substance: ALBUTEROL
     Indication: ASTHMA
  3. FORSTEO [Suspect]
     Active Substance: TERIPARATIDE
     Indication: OSTEOPOROSIS
     Dosage: 20 UG, UNKNOWN
     Route: 065
     Dates: start: 201603

REACTIONS (10)
  - Aphasia [Unknown]
  - Ataxia [Unknown]
  - Movement disorder [Unknown]
  - Headache [Unknown]
  - Posterior reversible encephalopathy syndrome [Recovering/Resolving]
  - Cerebral haematoma [Unknown]
  - Bradyphrenia [Unknown]
  - Neurologic neglect syndrome [Unknown]
  - Subarachnoid haemorrhage [Unknown]
  - IIIrd nerve disorder [Unknown]

NARRATIVE: CASE EVENT DATE: 201604
